FAERS Safety Report 9367419 (Version 1)
Quarter: 2013Q2

REPORT INFORMATION
  Report Type: Spontaneous
  Country: US (occurrence: US)
  Receive Date: 20130625
  Receipt Date: 20130625
  Transmission Date: 20140414
  Serious: No
  Sender: FDA-Public Use
  Company Number: US-ASTELLAS-2012US006305

PATIENT
  Sex: Female
  Weight: 91 kg

DRUGS (5)
  1. VESICARE [Suspect]
     Indication: HYPERTONIC BLADDER
     Dosage: 5 MG, UID/QD
     Route: 048
     Dates: start: 201205, end: 201206
  2. DOXAZOSIN [Concomitant]
     Indication: BLOOD PRESSURE
     Dosage: 2 MG ONCE DAILY
     Route: 048
  3. ENALAPRIL [Concomitant]
     Indication: BLOOD PRESSURE
     Dosage: 10 - 25 MG TWICE DAILY
     Route: 048
  4. METFORMIN [Concomitant]
     Indication: DIABETES MELLITUS
     Dosage: 500 MG ONCE DAILY
     Route: 048
  5. LASIX + K [Concomitant]
     Indication: FLUID RETENTION
     Dosage: 1 DF, QOD
     Route: 048

REACTIONS (3)
  - Drug ineffective [Unknown]
  - Fall [Unknown]
  - Vision blurred [Not Recovered/Not Resolved]
